FAERS Safety Report 5965642-0 (Version None)
Quarter: 2008Q4

REPORT INFORMATION
  Report Type: 
  Country: None (occurrence: None)
  Receive Date: 20081121
  Receipt Date: 20081121
  Transmission Date: 20090506
  Serious: Yes (Other)
  Sender: FDA-Public Use
  Company Number: None

PATIENT
  Age: 71 Year
  Sex: Male
  Weight: 97.5234 kg

DRUGS (1)
  1. TESTIM [Suspect]
     Indication: RESORPTION BONE INCREASED
     Dosage: 1 TUBE DAILY SKIN
     Dates: start: 20080301, end: 20080701

REACTIONS (6)
  - AFFECTIVE DISORDER [None]
  - FAMILY STRESS [None]
  - HOT FLUSH [None]
  - HYPERHIDROSIS [None]
  - IRRITABILITY [None]
  - SLEEP APNOEA SYNDROME [None]
